FAERS Safety Report 7866643-8 (Version None)
Quarter: 2011Q4

REPORT INFORMATION
  Report Type: 
  Country: None (occurrence: None)
  Receive Date: 20111028
  Receipt Date: 20110719
  Transmission Date: 20120403
  Serious: No
  Sender: FDA-Public Use
  Company Number: US-GLAXOSMITHKLINE-A0937343A

PATIENT
  Sex: Male

DRUGS (4)
  1. ADVAIR DISKUS 100/50 [Suspect]
     Indication: CHRONIC OBSTRUCTIVE PULMONARY DISEASE
     Route: 055
     Dates: start: 20110716
  2. IPRATROPIUM SALBUTAMOL [Concomitant]
  3. BROVANA [Concomitant]
  4. PROAIR HFA [Concomitant]

REACTIONS (1)
  - MUSCLE SPASMS [None]
